FAERS Safety Report 5597922-5 (Version None)
Quarter: 2007Q4

REPORT INFORMATION
  Report Type: 
  Country: None (occurrence: None)
  Receive Date: 20071226
  Receipt Date: 20070625
  Transmission Date: 20080405
  Serious: Yes (Other)
  Sender: FDA-Public Use
  Company Number: 230704

PATIENT
  Age: 51 Year
  Sex: Male
  Weight: 108.8 kg

DRUGS (12)
  1. RAPTIVA [Suspect]
     Indication: PSORIASIS
     Dosage: 125 MG, 1/WEEK, SUBCUTANEOUS
     Route: 058
     Dates: start: 20060613
  2. CYCLOSPORINE [Concomitant]
  3. SPIRIVA [Concomitant]
  4. INHALER (TYPE UNKNOWN) (GENERIC COMPONENTS(S) NOT KNOWN) [Concomitant]
  5. WELLBUTRIN [Concomitant]
  6. SORIATANE [Concomitant]
  7. PREVACID [Concomitant]
  8. BACTRIM [Concomitant]
  9. TRICOR [Concomitant]
  10. LAMICTAL [Concomitant]
  11. OXYCONTIN [Concomitant]
  12. PERCOCET [Concomitant]

REACTIONS (1)
  - PSORIASIS [None]
